FAERS Safety Report 8381925 (Version 2)
Quarter: 2013Q2

REPORT INFORMATION
  Report Type: Spontaneous
  Country: US (occurrence: US)
  Receive Date: 20120201
  Receipt Date: 20130416
  Transmission Date: 20140414
  Serious: Yes (Hospitalization, Other)
  Sender: FDA-Public Use
  Company Number: US-US-EMD SERONO, INC.-7030754

PATIENT
  Sex: Female

DRUGS (3)
  1. REBIF [Suspect]
     Indication: MULTIPLE SCLEROSIS
     Route: 058
     Dates: start: 20080214, end: 201007
  2. REBIF [Suspect]
     Route: 058
     Dates: start: 20110307
  3. MOTRIN [Concomitant]
     Indication: PREMEDICATION

REACTIONS (2)
  - Type 2 diabetes mellitus [Unknown]
  - Multiple sclerosis relapse [Unknown]
